FAERS Safety Report 18702774 (Version 1)
Quarter: 2021Q1

REPORT INFORMATION
  Report Type: Report from Study
  Country: US (occurrence: US)
  Receive Date: 20210105
  Receipt Date: 20210105
  Transmission Date: 20210419
  Serious: Yes (Hospitalization)
  Sender: FDA-Public Use
  Company Number: US-EISAI MEDICAL RESEARCH-EC-2020-085636

PATIENT
  Age: 70 Year
  Sex: Female

DRUGS (1)
  1. LENVIMA [Suspect]
     Active Substance: LENVATINIB
     Indication: SARCOMA UTERUS
     Route: 048
     Dates: start: 20201215

REACTIONS (5)
  - Epistaxis [Unknown]
  - Cerebrovascular accident [Unknown]
  - Fatigue [Unknown]
  - Blood pressure increased [Unknown]
  - Myalgia [Unknown]

NARRATIVE: CASE EVENT DATE: 20201215
